APPROVED DRUG PRODUCT: IFEX
Active Ingredient: IFOSFAMIDE
Strength: 3GM/VIAL **Federal Register determination that product was not discontinued or withdrawn for safety or effectiveness reasons**
Dosage Form/Route: INJECTABLE;INJECTION
Application: N019763 | Product #002 | TE Code: AP
Applicant: BAXTER HEALTHCARE CORP
Approved: Dec 30, 1988 | RLD: Yes | RS: No | Type: RX